FAERS Safety Report 4602173-4 (Version None)
Quarter: 2005Q1

REPORT INFORMATION
  Report Type: 
  Country: None (occurrence: None)
  Receive Date: 20050131
  Receipt Date: 20041001
  Transmission Date: 20050727
  Serious: No
  Sender: FDA-Public Use
  Company Number: 200417600US

PATIENT
  Sex: Female

DRUGS (2)
  1. KETEK [Suspect]
     Indication: SINUSITIS
  2. MORTRIPTYLINE HYDROCHLORIDE (PAMELOR) [Suspect]
     Indication: DEPRESSION

REACTIONS (2)
  - CONFUSIONAL STATE [None]
  - DIZZINESS [None]
